FAERS Safety Report 8275216-7 (Version None)
Quarter: 2012Q2

REPORT INFORMATION
  Report Type: 
  Country: None (occurrence: None)
  Receive Date: 20120411
  Receipt Date: 20120409
  Transmission Date: 20120825
  Serious: Yes (Other)
  Sender: FDA-Public Use
  Company Number: US-VERTEX PHARMACEUTICALS INC.-AE-2012-001862

PATIENT
  Sex: Female
  Weight: 70.37 kg

DRUGS (6)
  1. RIBAVIRIN [Concomitant]
     Dates: start: 20120320
  2. INTERFERON [Concomitant]
     Indication: HEPATITIS C
     Route: 058
     Dates: start: 20120201
  3. INCIVEK [Suspect]
     Indication: HEPATITIS C
     Route: 048
     Dates: start: 20120201
  4. RIBAVIRIN [Concomitant]
     Indication: HEPATITIS C
     Route: 048
     Dates: start: 20120201, end: 20120319
  5. NEXIUM [Concomitant]
  6. IMPREX [Concomitant]
     Indication: MIGRAINE

REACTIONS (8)
  - ANAL PRURITUS [None]
  - ANORECTAL DISCOMFORT [None]
  - DEHYDRATION [None]
  - DIARRHOEA [None]
  - RASH GENERALISED [None]
  - OEDEMA PERIPHERAL [None]
  - PRURITUS [None]
  - ANAL HAEMORRHAGE [None]
